FAERS Safety Report 7874413-X (Version None)
Quarter: 2011Q4

REPORT INFORMATION
  Report Type: 
  Country: None (occurrence: None)
  Receive Date: 20111030
  Receipt Date: 20110519
  Transmission Date: 20120403
  Serious: No
  Sender: FDA-Public Use
  Company Number: US-AMGEN-USASP2011026266

PATIENT
  Age: 22 Year
  Sex: Female

DRUGS (2)
  1. ENBREL [Suspect]
     Indication: PSORIASIS
  2. ENBREL [Suspect]
     Indication: GUTTATE PSORIASIS
     Dosage: 50 MG, 2 TIMES/WK
     Dates: start: 20110301

REACTIONS (5)
  - GUTTATE PSORIASIS [None]
  - INCORRECT DOSE ADMINISTERED [None]
  - INJECTION SITE REACTION [None]
  - PSORIASIS [None]
  - DRUG ADMINISTERED AT INAPPROPRIATE SITE [None]
